FAERS Safety Report 12333040 (Version 1)
Quarter: 2016Q2

REPORT INFORMATION
  Report Type: Spontaneous
  Country: SE (occurrence: SE)
  Receive Date: 20160504
  Receipt Date: 20160504
  Transmission Date: 20160815
  Serious: Yes (Other)
  Sender: FDA-Public Use
  Company Number: SE-PFIZER INC-2016239691

PATIENT
  Sex: Female

DRUGS (1)
  1. TERRA-CORTRIL POLYMYXIN B [Suspect]
     Active Substance: HYDROCORTISONE\OXYTETRACYCLINE HYDROCHLORIDE\POLYMYXIN B SULFATE
     Indication: ANTIBIOTIC PROPHYLAXIS
     Dosage: 3 DF, DAILY
     Dates: start: 20160229, end: 20160310

REACTIONS (3)
  - Eyelid pain [Recovering/Resolving]
  - Application site vesicles [Recovering/Resolving]
  - Eyelid irritation [Recovering/Resolving]

NARRATIVE: CASE EVENT DATE: 20160310
